FAERS Safety Report 21206471 (Version 1)
Quarter: 2022Q3

REPORT INFORMATION
  Report Type: Spontaneous
  Country: US (occurrence: US)
  Receive Date: 20220812
  Receipt Date: 20220812
  Transmission Date: 20221027
  Serious: No
  Sender: FDA-Public Use
  Company Number: US-Millicent Holdings Ltd.-MILL20220205

PATIENT
  Sex: Female

DRUGS (2)
  1. INTRAROSA [Suspect]
     Active Substance: PRASTERONE
     Indication: Product used for unknown indication
     Dosage: 6.5 MG, UNKNOWN
     Route: 067
     Dates: start: 2022
  2. INTRAROSA [Suspect]
     Active Substance: PRASTERONE
     Dosage: 6.5 MG, UNKNOWN
     Route: 067

REACTIONS (3)
  - Underdose [Unknown]
  - Poor quality product administered [Unknown]
  - Product use issue [Unknown]

NARRATIVE: CASE EVENT DATE: 20220101
